FAERS Safety Report 9004334 (Version 1)
Quarter: 2013Q1

REPORT INFORMATION
  Report Type: Spontaneous
  Country: US (occurrence: None)
  Receive Date: 20130104
  Receipt Date: 20130104
  Transmission Date: 20140127
  Serious: No
  Sender: FDA-Public Use
  Company Number: None

PATIENT
  Age: 9 Year
  Sex: Female
  Weight: 37.2 kg

DRUGS (1)
  1. TAMIFLU [Suspect]
     Indication: INFLUENZA
     Dosage: 10 ML  BID  PO?ONE DOSE ON 12/28/2012
     Route: 048
     Dates: start: 20121228

REACTIONS (2)
  - Hallucination [None]
  - Delirium [None]
